FAERS Safety Report 8867181 (Version 1)
Quarter: 2012Q4

REPORT INFORMATION
  Report Type: 
  Country: US (occurrence: US)
  Receive Date: 20121025
  Receipt Date: 20121025
  Transmission Date: 20130627
  Serious: Yes (Other)
  Sender: FDA-Public Use
  Company Number: US-AMGEN-USASP2012015113

PATIENT
  Sex: Male
  Weight: 83.9 kg

DRUGS (5)
  1. ENBREL [Suspect]
     Indication: PRODUCT USED FOR UNKNOWN INDICATION
     Dosage: 50 mg, qwk
     Route: 058
  2. LEFLUNOMIDE [Concomitant]
     Dosage: 10 mg, UNK
  3. NAPROXEN [Concomitant]
     Dosage: 375 mg, UNK
  4. MULTIVITAMIN                       /00097801/ [Concomitant]
     Dosage: UNK
  5. GLUCOSAMINE /CHOND                 /01639101/ [Concomitant]
     Dosage: UNK

REACTIONS (1)
  - Skin cancer [Unknown]
